FAERS Safety Report 7876456 (Version 2)
Quarter: 2013Q1

REPORT INFORMATION
  Report Type: Spontaneous
  Country: US (occurrence: US)
  Receive Date: 20110329
  Receipt Date: 20130311
  Transmission Date: 20140127
  Serious: Yes (Other)
  Sender: FDA-Public Use
  Company Number: US-US-EMD SERONO, INC.-7049155

PATIENT
  Sex: Male
  Weight: 87 kg

DRUGS (3)
  1. REBIF [Suspect]
     Indication: MULTIPLE SCLEROSIS
     Route: 058
     Dates: start: 20050309
  2. REBIF [Suspect]
     Dates: start: 201101, end: 20130301
  3. IBUPROFEN [Concomitant]
     Indication: PREMEDICATION

REACTIONS (2)
  - Chronic lymphocytic leukaemia [Not Recovered/Not Resolved]
  - Prostatitis [Unknown]
